FAERS Safety Report 10131160 (Version 4)
Quarter: 2014Q2

REPORT INFORMATION
  Report Type: Spontaneous
  Country: JP (occurrence: JP)
  Receive Date: 20140428
  Receipt Date: 20140502
  Transmission Date: 20141212
  Serious: Yes (Hospitalization, Other)
  Sender: FDA-Public Use
  Company Number: JP-PFIZER INC-2014091744

PATIENT
  Age: 95 Year
  Sex: Female
  Weight: 38.5 kg

DRUGS (11)
  1. LYRICA [Suspect]
     Indication: PAIN IN EXTREMITY
     Dosage: 75 MG, 1X/DAY BEFORE BEDTIME
     Route: 048
     Dates: start: 20140319, end: 20140328
  2. LYRICA [Suspect]
     Indication: HYPOAESTHESIA
  3. MICAMLO AP [Concomitant]
     Indication: HYPERTENSION
     Dosage: UNK, 1X/DAY
     Route: 048
     Dates: start: 20121120
  4. GASTER D [Concomitant]
     Indication: CHRONIC GASTRITIS
     Dosage: 20 MG, 1X/DAY
     Route: 048
  5. BAYASPIRIN [Concomitant]
     Dosage: 100 MG, ONCE A TIME (FREQUENCY UNKNOWN)
     Route: 048
  6. PLATIBIT [Concomitant]
     Indication: OSTEOPOROSIS
     Dosage: 0.5 UG, 1X/DAY
     Route: 048
     Dates: start: 20121106
  7. CELECOX [Concomitant]
     Indication: SPINAL OSTEOARTHRITIS
     Dosage: 200 MG, 2X/DAY
     Route: 048
     Dates: start: 20130409
  8. MECOLAMIN [Concomitant]
     Indication: SPINAL OSTEOARTHRITIS
     Dosage: 250 UG, 3X/DAY
     Route: 048
     Dates: start: 20130924
  9. LENDORMIN [Concomitant]
     Indication: INSOMNIA
     Dosage: 0.25 MG, 1X/DAY
     Route: 048
  10. PURSENNID [Concomitant]
     Indication: CONSTIPATION
     Dosage: UNK, 1X/DAY
     Route: 048
  11. EPOGIN [Concomitant]
     Indication: NEPHROGENIC ANAEMIA
     Dosage: 12000 IU, MONTHLY
     Route: 058

REACTIONS (7)
  - Dizziness [Recovered/Resolved]
  - C-reactive protein increased [Recovered/Resolved]
  - Bronchopneumonia [Unknown]
  - Cough [Unknown]
  - Muscular weakness [Unknown]
  - Malaise [Unknown]
  - Fall [Unknown]
